FAERS Safety Report 5367687-0 (Version None)
Quarter: 2007Q2

REPORT INFORMATION
  Report Type: 
  Country: None (occurrence: None)
  Receive Date: 20070622
  Receipt Date: 20070116
  Transmission Date: 20071010
  Serious: No
  Sender: FDA-Public Use
  Company Number: US-ASTRAZENECA-2007UW00798

PATIENT
  Age: 41 Year
  Sex: Male

DRUGS (3)
  1. PULMICORT [Suspect]
     Indication: COUGH
     Route: 055
     Dates: start: 20070109
  2. PULMICORT [Suspect]
     Indication: DYSPNOEA
     Route: 055
     Dates: start: 20070109
  3. PROVENTIL-HFA [Concomitant]

REACTIONS (1)
  - LIP SWELLING [None]
